FAERS Safety Report 7732239-1 (Version None)
Quarter: 2011Q3

REPORT INFORMATION
  Report Type: 
  Country: None (occurrence: None)
  Receive Date: 20110906
  Receipt Date: 20110824
  Transmission Date: 20111222
  Serious: Yes (Hospitalization)
  Sender: FDA-Public Use
  Company Number: JP-ELI_LILLY_AND_COMPANY-JP201107006691

PATIENT
  Sex: Male
  Weight: 58.2 kg

DRUGS (4)
  1. KINEDAK [Concomitant]
     Dosage: 50 MG, TID
     Route: 048
     Dates: start: 20070222, end: 20110721
  2. LIVALO [Concomitant]
     Dosage: 1 MG, QD
     Route: 048
     Dates: start: 20080403, end: 20110721
  3. HUMALOG MIX 50/50 [Suspect]
     Indication: TYPE 2 DIABETES MELLITUS
     Dosage: UNK UNK, TID
     Route: 058
     Dates: start: 20060105, end: 20110721
  4. METFORMIN HCL [Concomitant]
     Indication: TYPE 2 DIABETES MELLITUS
     Dosage: 250 MG, TID
     Route: 048
     Dates: start: 20110609, end: 20110721

REACTIONS (1)
  - LIVER DISORDER [None]
